FAERS Safety Report 7090128-2 (Version None)
Quarter: 2010Q4

REPORT INFORMATION
  Report Type: 
  Country: None (occurrence: None)
  Receive Date: 20101105
  Receipt Date: 20101105
  Transmission Date: 20110411
  Serious: Yes (Other)
  Sender: FDA-Public Use
  Company Number: None

PATIENT
  Sex: Male
  Weight: 68.0396 kg

DRUGS (2)
  1. PAXIL CR [Suspect]
     Indication: ANXIETY
     Dosage: 1 TABLET DAILY
  2. PAXIL CR [Suspect]
     Indication: DEPRESSION
     Dosage: 1 TABLET DAILY

REACTIONS (2)
  - INSOMNIA [None]
  - IRRITABILITY [None]
